FAERS Safety Report 7078425-8 (Version None)
Quarter: 2010Q4

REPORT INFORMATION
  Report Type: 
  Country: None (occurrence: None)
  Receive Date: 20101101
  Receipt Date: 20101101
  Transmission Date: 20110411
  Serious: Yes (Hospitalization)
  Sender: FDA-Public Use
  Company Number: None

PATIENT
  Age: 58 Year
  Sex: Male
  Weight: 99 kg

DRUGS (2)
  1. ENOXAPARIN SODIUM [Suspect]
     Indication: VASCULAR OPERATION
     Dosage: 100 MG BID SQ
     Route: 058
     Dates: start: 20100905, end: 20100909
  2. WARFARIN SODIUM [Suspect]
     Indication: VASCULAR OPERATION
     Dosage: 5.7 MG EVERY DAY PO
     Route: 048
     Dates: start: 20100730

REACTIONS (1)
  - HAEMATOMA [None]
